FAERS Safety Report 6303885-7 (Version None)
Quarter: 2009Q3

REPORT INFORMATION
  Report Type: 
  Country: None (occurrence: None)
  Receive Date: 20090805
  Receipt Date: 20090721
  Transmission Date: 20100115
  Serious: Yes (Other)
  Sender: FDA-Public Use
  Company Number: DSU-2009-01494

PATIENT
  Age: 48 Year
  Sex: Female
  Weight: 69.8539 kg

DRUGS (9)
  1. WELCHOL [Suspect]
     Indication: HYPERLIPIDAEMIA
     Dosage: 3750 MG (1875 MG, BID), PER ORAL
     Route: 048
     Dates: start: 20090319
  2. COUMADIN [Concomitant]
  3. METFORMIN HCL [Concomitant]
  4. METOPROLOL SUCCINATE [Concomitant]
  5. ALPRAZOLAM [Concomitant]
  6. ALBUTEROL (SALBUTAMOL) (SALBUTAMOL) [Concomitant]
  7. ZOLPIDEM (ZOLPIDEM) (ZOLPIDEM) [Concomitant]
  8. ASPIRIN [Concomitant]
  9. SAVELLA [Concomitant]

REACTIONS (7)
  - BASAL CELL CARCINOMA [None]
  - NAUSEA [None]
  - PRODUCT CONTAMINATION PHYSICAL [None]
  - PRODUCT QUALITY ISSUE [None]
  - SQUAMOUS CELL CARCINOMA [None]
  - VOMITING [None]
  - WEIGHT DECREASED [None]
